FAERS Safety Report 9696022 (Version 2)
Quarter: 2014Q1

REPORT INFORMATION
  Report Type: Spontaneous
  Country: US (occurrence: US)
  Receive Date: 20131119
  Receipt Date: 20140129
  Transmission Date: 20141002
  Serious: No
  Sender: FDA-Public Use
  Company Number: US-009507513-1311USA007997

PATIENT
  Age: 81 Year
  Sex: Female

DRUGS (2)
  1. CLARITIN-D-12 [Suspect]
     Indication: HYPERSENSITIVITY
     Dosage: 5 MG, Q12H
     Route: 048
     Dates: start: 20131107, end: 201311
  2. CLARITIN-D-12 [Suspect]
     Indication: RHINORRHOEA

REACTIONS (2)
  - Sneezing [Unknown]
  - Drug ineffective [Unknown]
